FAERS Safety Report 14262818 (Version 2)
Quarter: 2018Q1

REPORT INFORMATION
  Report Type: Report from Study
  Country: US (occurrence: US)
  Receive Date: 20171208
  Receipt Date: 20180215
  Transmission Date: 20180508
  Serious: Yes (Hospitalization, Other)
  Sender: FDA-Public Use
  Company Number: US-AMGEN-USASL2017180012

PATIENT
  Age: 74 Year
  Sex: Female

DRUGS (1)
  1. REPATHA [Suspect]
     Active Substance: EVOLOCUMAB
     Indication: HYPERCHOLESTEROLAEMIA
     Dosage: 140 MG, Q2WK
     Route: 065
     Dates: start: 201703

REACTIONS (8)
  - Asthenia [Unknown]
  - Pneumonia [Unknown]
  - Cardiac disorder [Unknown]
  - Injection site haemorrhage [Unknown]
  - Fall [Unknown]
  - Ankle fracture [Unknown]
  - Drug dose omission [Unknown]
  - Arthritis [Unknown]

NARRATIVE: CASE EVENT DATE: 2017
